FAERS Safety Report 4746258-0 (Version None)
Quarter: 2005Q3

REPORT INFORMATION
  Report Type: 
  Country: None (occurrence: None)
  Receive Date: 20050816
  Receipt Date: 20050801
  Transmission Date: 20060218
  Serious: Yes (Death, Hospitalization, Other)
  Sender: FDA-Public Use
  Company Number: US_0506118407

PATIENT
  Age: 45 Year
  Weight: 77 kg

DRUGS (13)
  1. ZYPREXA [Suspect]
     Indication: DEPRESSION
     Dosage: 10 MG/1 AT BEDTIME
     Dates: start: 20000814
  2. ABILIFY [Concomitant]
  3. SEROQUEL [Concomitant]
  4. HYDROCHLOROTHIAZIDE [Concomitant]
  5. KLONOPIN [Concomitant]
  6. TRAZADONE (TRAZODONE) [Concomitant]
  7. PREDNISONE [Concomitant]
  8. NEURONTIN [Concomitant]
  9. XANAX [Concomitant]
  10. PAXIL [Concomitant]
  11. ZOLOFT [Concomitant]
  12. REMERON [Concomitant]
  13. ATIVAN [Concomitant]

REACTIONS (5)
  - HAEMOGLOBIN DECREASED [None]
  - METASTASES TO LIVER [None]
  - METASTASES TO LUNG [None]
  - PANCREATIC CARCINOMA STAGE IV [None]
  - PANCREATITIS [None]
